FAERS Safety Report 21370810 (Version 1)
Quarter: 2022Q3

REPORT INFORMATION
  Report Type: Spontaneous
  Country: DE (occurrence: DE)
  Receive Date: 20220923
  Receipt Date: 20220923
  Transmission Date: 20221027
  Serious: Yes (Hospitalization)
  Sender: FDA-Public Use
  Company Number: DE-ADRED-06699-01

PATIENT
  Age: 62 Year
  Sex: Female

DRUGS (16)
  1. SPIRONOLACTONE [Suspect]
     Active Substance: SPIRONOLACTONE
     Indication: Product used for unknown indication
     Route: 048
  2. CAPECITABINE [Suspect]
     Active Substance: CAPECITABINE
     Indication: Product used for unknown indication
     Dosage: 1200 MG/M2, ZULETZT 24092020?1200 MG/M2, LAST 24092020
     Dates: end: 20200924
  3. CHLORTHALIDONE [Suspect]
     Active Substance: CHLORTHALIDONE
     Indication: Product used for unknown indication
     Route: 048
  4. METAMIZOL [Concomitant]
     Active Substance: METAMIZOLE SODIUM
     Indication: Product used for unknown indication
     Route: 048
  5. RIFAXIMIN [Concomitant]
     Active Substance: RIFAXIMIN
     Indication: Product used for unknown indication
     Route: 048
  6. MORPHINE [Concomitant]
     Active Substance: MORPHINE
     Indication: Product used for unknown indication
     Dosage: 5 MG/ML 2 PERCENT, BEI BEDARF BIS ZU VIERMAL T?GLICH, TROPFEN?5 MG/ML 2PERCENT, DROPS UP TO FOUR TIM
     Route: 048
  7. CARVEDILOL [Concomitant]
     Active Substance: CARVEDILOL
     Indication: Product used for unknown indication
     Route: 048
  8. AMLODIPINE BESYLATE [Concomitant]
     Active Substance: AMLODIPINE BESYLATE
     Indication: Product used for unknown indication
     Route: 048
  9. CANDESARTAN [Concomitant]
     Active Substance: CANDESARTAN
     Indication: Product used for unknown indication
     Route: 048
  10. Ispaghula (Flohsamen) [Concomitant]
     Indication: Product used for unknown indication
     Dosage: 1-1-0-0, BEUTEL?1-1-0-0, BAG
     Route: 048
  11. LORAZEPAM [Concomitant]
     Active Substance: LORAZEPAM
     Indication: Product used for unknown indication
     Route: 048
  12. FLUOXETINE [Concomitant]
     Active Substance: FLUOXETINE HYDROCHLORIDE
     Indication: Product used for unknown indication
     Route: 048
  13. Bayotensin akut 5mg/1ml L?sung zum Einnehmen [Concomitant]
     Indication: Product used for unknown indication
     Dosage: 5MG/1ML
  14. MAGNESIUM ASPARTATE HYDROCHLORIDE [Concomitant]
     Active Substance: MAGNESIUM ASPARTATE HYDROCHLORIDE
     Indication: Product used for unknown indication
     Dosage: 0-1-0-0, BEUTEL GRANULAT?0-1-0-0, BAG GRANULES
     Route: 048
  15. PANTOPRAZOLE [Concomitant]
     Active Substance: PANTOPRAZOLE
     Indication: Product used for unknown indication
     Route: 048
  16. HALOPERIDOL [Concomitant]
     Active Substance: HALOPERIDOL
     Indication: Product used for unknown indication
     Dosage: 3 GTT EQUALS 0.3MG, BEI BEDARF BIS ZU DREIMAL T?GLICH, TROPFEN?3 GTT EQUALS 0.3MG, IF NEEDED UP TO T
     Route: 048

REACTIONS (8)
  - Depressed level of consciousness [Unknown]
  - Cough [Unknown]
  - Dysarthria [Unknown]
  - Wheezing [Unknown]
  - General physical health deterioration [Unknown]
  - Hypotension [Unknown]
  - Dehydration [Unknown]
  - Vomiting [Unknown]
